FAERS Safety Report 8135485-0 (Version None)
Quarter: 2012Q1

REPORT INFORMATION
  Report Type: 
  Country: None (occurrence: None)
  Receive Date: 20120214
  Receipt Date: 20120130
  Transmission Date: 20120608
  Serious: Yes (Other)
  Sender: FDA-Public Use
  Company Number: US-ROCHE-GNE286660

PATIENT
  Age: 11 Year
  Sex: Male

DRUGS (2)
  1. SOMATROPIN [Suspect]
     Indication: BODY HEIGHT BELOW NORMAL
     Dosage: 0.48-0.5 MG/KG/WEEK
  2. METFORMIN HCL [Concomitant]
     Indication: INSULIN RESISTANCE

REACTIONS (2)
  - PITUITARY-DEPENDENT CUSHING'S SYNDROME [None]
  - BLOOD CORTICOTROPHIN INCREASED [None]
